FAERS Safety Report 8451714-8 (Version None)
Quarter: 2012Q2

REPORT INFORMATION
  Report Type: 
  Country: None (occurrence: None)
  Receive Date: 20120620
  Receipt Date: 20120314
  Transmission Date: 20120825
  Serious: No
  Sender: FDA-Public Use
  Company Number: US-VERTEX PHARMACEUTICALS INC.-AE-2012-003704

PATIENT
  Sex: Female
  Weight: 72.64 kg

DRUGS (5)
  1. OXYCODONE HCL [Concomitant]
     Indication: NECK PAIN
  2. VALIUM [Concomitant]
  3. RIBAVIRIN [Concomitant]
     Indication: HEPATITIS C
     Dates: start: 20111221
  4. INCIVEK [Suspect]
     Indication: HEPATITIS C
     Route: 048
     Dates: start: 20111221
  5. PEGASYS [Concomitant]
     Indication: HEPATITIS C
     Route: 058
     Dates: start: 20111221

REACTIONS (3)
  - MEMORY IMPAIRMENT [None]
  - ANGER [None]
  - INAPPROPRIATE SCHEDULE OF DRUG ADMINISTRATION [None]
